FAERS Safety Report 9311502 (Version 1)
Quarter: 2013Q2

REPORT INFORMATION
  Report Type: Spontaneous
  Country: US (occurrence: US)
  Receive Date: 20130528
  Receipt Date: 20130528
  Transmission Date: 20140414
  Serious: Yes (Hospitalization, Other)
  Sender: FDA-Public Use
  Company Number: US-BAXTER-2013BAX018711

PATIENT
  Sex: Female

DRUGS (5)
  1. LIDOCAINE HYDROCHLORIDE AND 5% DEXTROSE INJECTION, USP [Suspect]
     Indication: VENTRICULAR ARRHYTHMIA
     Route: 064
  2. MAGNESIUM [Suspect]
     Indication: VENTRICULAR ARRHYTHMIA
     Route: 064
  3. MAGNESIUM [Suspect]
     Indication: THREATENED LABOUR
  4. MEXILETINE [Suspect]
     Indication: VENTRICULAR ARRHYTHMIA
     Route: 064
  5. AMIODARONE [Suspect]
     Indication: VENTRICULAR ARRHYTHMIA
     Route: 064

REACTIONS (2)
  - Premature baby [Recovered/Resolved]
  - Foetal exposure during pregnancy [Recovered/Resolved]
